FAERS Safety Report 9979040 (Version 1)
Quarter: 2014Q1

REPORT INFORMATION
  Report Type: Report from Study
  Country: US (occurrence: US)
  Receive Date: 20140306
  Receipt Date: 20140306
  Transmission Date: 20141002
  Serious: No
  Sender: FDA-Public Use
  Company Number: US-ABBVIE-13P-163-1173855-00

PATIENT
  Age: 66 Year
  Sex: Female

DRUGS (7)
  1. HUMIRA [Suspect]
     Indication: PSORIATIC ARTHROPATHY
     Dates: start: 201112
  2. VERAPAMIL [Suspect]
     Indication: MIGRAINE
     Dates: end: 201312
  3. AMERGE [Concomitant]
     Indication: MIGRAINE
     Route: 048
  4. ZOLOFT [Concomitant]
     Indication: PRODUCT USED FOR UNKNOWN INDICATION
     Route: 048
  5. METHOTREXATE [Concomitant]
     Indication: ARTHRITIS
     Route: 048
  6. OXYBUTYNIN [Concomitant]
     Indication: URINARY INCONTINENCE
     Route: 048
  7. DEPAKOTE [Concomitant]
     Indication: MIGRAINE
     Dosage: QHS
     Route: 048

REACTIONS (4)
  - Micturition urgency [Not Recovered/Not Resolved]
  - Drug ineffective [Unknown]
  - Migraine [Recovering/Resolving]
  - Sinusitis [Recovered/Resolved]
